FAERS Safety Report 12811083 (Version 1)
Quarter: 2016Q4

REPORT INFORMATION
  Report Type: Spontaneous
  Country: DK (occurrence: DK)
  Receive Date: 20161005
  Receipt Date: 20161005
  Transmission Date: 20170207
  Serious: Yes (Hospitalization)
  Sender: FDA-Public Use
  Company Number: PHHY2016DK132718

PATIENT
  Age: 34 Year
  Sex: Female

DRUGS (4)
  1. IMADRAX [Suspect]
     Active Substance: AMOXICILLIN
     Indication: URINARY TRACT INFECTION
     Route: 048
     Dates: start: 20160228, end: 20160307
  2. LYRICA [Concomitant]
     Active Substance: PREGABALIN
     Indication: ANXIETY
     Dosage: STRENGTH: 25 MG.
     Route: 048
  3. PAROXETIN HEXAL [Concomitant]
     Active Substance: PAROXETINE HYDROCHLORIDE
     Indication: DEPRESSION
     Dosage: STRENGTH: 20 MG.
     Route: 048
  4. OMEPRAZOLE. [Concomitant]
     Active Substance: OMEPRAZOLE
     Indication: ABDOMINAL PAIN UPPER
     Route: 065
     Dates: start: 20160225

REACTIONS (7)
  - Dyspnoea [Unknown]
  - Rash [Unknown]
  - Tinnitus [Unknown]
  - Dizziness [Unknown]
  - Headache [Unknown]
  - Hypoacusis [Unknown]
  - Ear pain [Unknown]

NARRATIVE: CASE EVENT DATE: 201603
